FAERS Safety Report 4745330-9 (Version None)
Quarter: 2005Q3

REPORT INFORMATION
  Report Type: 
  Country: None (occurrence: None)
  Receive Date: 20050812
  Receipt Date: 20050803
  Transmission Date: 20060218
  Serious: Yes (Other)
  Sender: FDA-Public Use
  Company Number: 2005094279

PATIENT
  Sex: Female
  Weight: 74.8435 kg

DRUGS (24)
  1. CELEBREX [Suspect]
     Indication: ARTHRITIS
     Dosage: 200 MG (200 MG, 3 IN 1 WK), ORAL
     Route: 048
     Dates: start: 20010701, end: 20050615
  2. CELEBREX [Suspect]
     Indication: OSTEOARTHRITIS
     Dosage: 200 MG (200 MG, 3 IN 1 WK), ORAL
     Route: 048
     Dates: start: 20010701, end: 20050615
  3. BEXTRA [Suspect]
     Indication: ARTHRITIS
     Dosage: 1 IN 1 D, ORAL
     Route: 048
  4. POTASSIUM CHLORIDE [Concomitant]
  5. ANTIHYPERTENSIVES (ANTIHYPERTENSIVES) [Concomitant]
  6. MAXZIDE [Concomitant]
  7. TYLENOL [Concomitant]
  8. MICARDIS [Concomitant]
  9. TRAZODONE (TRAZODONE) [Concomitant]
  10. CARDIZEM CD [Concomitant]
  11. VICODIN [Concomitant]
  12. LIPRAM (PANCRELIPASE) [Concomitant]
  13. PROZAC [Concomitant]
  14. MIDRIN (DICHLORALPHENAZONE, ISOMETHEPTENE, PARACETAMOL) [Concomitant]
  15. OSCAL (CALCIUM CARBONATE) [Concomitant]
  16. VITAMIN C (VITAMIN C) [Concomitant]
  17. VITAMIN E [Concomitant]
  18. CARAFATE [Concomitant]
  19. ALL OTHER THERAPEUTIC PRODUCTS (ALL OTHER THERAPEUTIC PRODUCTS) [Concomitant]
  20. PRILOSEC [Concomitant]
  21. ANTIVERT (MECLOZINE HYDROCHLORIDE) [Concomitant]
  22. CENTRUM SILVER (ASCORBIC ACID, CALCIUM, MINERALS NOS, RETINOL, TOCOPHE [Concomitant]
  23. CRESTOR [Concomitant]
  24. MICRO K EXTENCAPS (POTASSIUM CHLORIDE) [Concomitant]

REACTIONS (12)
  - ABDOMINAL PAIN UPPER [None]
  - CAROTID ARTERY STENOSIS [None]
  - CHEST PAIN [None]
  - DIZZINESS [None]
  - DRUG HYPERSENSITIVITY [None]
  - GASTRIC ULCER [None]
  - INTERVERTEBRAL DISC DEGENERATION [None]
  - OSTEOARTHRITIS [None]
  - OSTEOPOROSIS [None]
  - PRURITUS [None]
  - SINUSITIS [None]
  - SWELLING [None]
